FAERS Safety Report 7940386-4 (Version None)
Quarter: 2011Q4

REPORT INFORMATION
  Report Type: 
  Country: None (occurrence: None)
  Receive Date: 20111127
  Receipt Date: 20111020
  Transmission Date: 20120403
  Serious: Yes (Hospitalization)
  Sender: FDA-Public Use
  Company Number: IT-CELGENEUS-083-C5013-11083187

PATIENT
  Sex: Male
  Weight: 52 kg

DRUGS (7)
  1. LENALIDOMIDE [Suspect]
     Indication: CHRONIC LYMPHOCYTIC LEUKAEMIA
     Dosage: 5 MILLIGRAM
     Route: 048
     Dates: start: 20100531
  2. AGGRENOX [Concomitant]
     Indication: ANTICOAGULANT THERAPY
     Dosage: 225 MILLIGRAM
     Route: 048
     Dates: start: 20110801
  3. RANITIDINA [Concomitant]
     Indication: GASTRIC DISORDER
     Dosage: 300 MILLIGRAM
     Route: 048
     Dates: start: 20100331
  4. DIPYRIDAMOLE [Concomitant]
     Route: 065
  5. LENALIDOMIDE [Suspect]
     Dosage: 15 MILLIGRAM
     Route: 048
     Dates: start: 20110711, end: 20110807
  6. ALLOPURINOL [Concomitant]
     Dosage: 300 MILLIGRAM
     Route: 048
     Dates: start: 20100331
  7. ASPIRIN [Concomitant]
     Dosage: 100 MILLIGRAM
     Route: 048
     Dates: start: 20100331, end: 20110826

REACTIONS (4)
  - DEEP VEIN THROMBOSIS [None]
  - PERIPHERAL ARTERY ANEURYSM [None]
  - GASTRITIS HAEMORRHAGIC [None]
  - THROMBOSIS [None]
